FAERS Safety Report 17691785 (Version 3)
Quarter: 2020Q2

REPORT INFORMATION
  Report Type: Spontaneous
  Country: US (occurrence: US)
  Receive Date: 20200422
  Receipt Date: 20200623
  Transmission Date: 20200714
  Serious: Yes (Death, Hospitalization, Other)
  Sender: FDA-Public Use
  Company Number: US-UNITED THERAPEUTICS-UNT-2020-006081

PATIENT
  Age: 38 Year
  Sex: Female
  Weight: 77.55 kg

DRUGS (24)
  1. PROVENTIL [Concomitant]
     Active Substance: ALBUTEROL
     Indication: DYSPNOEA
     Dosage: 3 ML, Q4H, AS NEEDED (2.5 MG/3 ML) (0.083%) NEBULIZER
     Dates: start: 20190908
  2. ATIVAN [Concomitant]
     Active Substance: LORAZEPAM
     Indication: ANXIETY
     Dosage: 1-2 DF, BID, AS NEEDED
     Route: 048
     Dates: start: 20200318
  3. ZOFRAN [Concomitant]
     Active Substance: ONDANSETRON HYDROCHLORIDE
     Indication: VOMITING
  4. COMPAZINE [Concomitant]
     Active Substance: PROCHLORPERAZINE MALEATE
     Indication: VOMITING
  5. ALBUTEROL HFA [Concomitant]
     Active Substance: ALBUTEROL SULFATE
     Indication: PROPHYLAXIS AGAINST BRONCHOSPASM
     Dosage: 1-2 PUFFS, Q4H, AS NEEDED
     Dates: start: 20190912
  6. TUSSIONEX PENNKINETIC [Concomitant]
     Active Substance: CHLORPHENIRAMINE\HYDROCODONE
     Indication: COUGH
     Dosage: 5 ML, Q12H, AS NEEDED
     Route: 048
     Dates: start: 20191024
  7. LINZESS [Concomitant]
     Active Substance: LINACLOTIDE
     Indication: PRODUCT USED FOR UNKNOWN INDICATION
     Dosage: 1 DF, (EVERY MORNING BEFORE BREAKFAST)
     Route: 048
     Dates: start: 20190718
  8. ALDACTONE [Concomitant]
     Active Substance: SPIRONOLACTONE
     Indication: PROPHYLAXIS
  9. ROXICODONE [Concomitant]
     Active Substance: OXYCODONE HYDROCHLORIDE
     Indication: PAIN
     Dosage: 1 DF, Q6H, AS NEEDED
     Route: 048
     Dates: start: 20191111
  10. REMODULIN [Suspect]
     Active Substance: TREPROSTINIL
     Indication: PULMONARY ARTERIAL HYPERTENSION
     Dosage: UNK, CONTINUING
     Route: 058
     Dates: start: 20171220
  11. LETAIRIS [Concomitant]
     Active Substance: AMBRISENTAN
     Indication: PULMONARY ARTERIAL HYPERTENSION
     Dosage: 1 DF, DAILY
     Route: 048
     Dates: start: 20200310
  12. REMODULIN [Suspect]
     Active Substance: TREPROSTINIL
     Dosage: 0.030 ?G/KG, CONTINUING (RATE OF 0.030 ML/HR)
     Route: 058
  13. ZOFRAN [Concomitant]
     Active Substance: ONDANSETRON HYDROCHLORIDE
     Indication: NAUSEA
     Dosage: 1 DF, Q8H, AS NEEDED
     Route: 048
     Dates: start: 20200331
  14. DUONEB [Concomitant]
     Active Substance: ALBUTEROL SULFATE\IPRATROPIUM BROMIDE
     Indication: DYSPNOEA
     Dosage: 3 ML, Q6H, AS NEEDED
     Dates: start: 20190908
  15. COMPAZINE [Concomitant]
     Active Substance: PROCHLORPERAZINE MALEATE
     Indication: NAUSEA
     Dosage: 1 DF, Q8H, AS NEEDED
     Route: 048
     Dates: start: 20200331
  16. ADCIRCA [Concomitant]
     Active Substance: TADALAFIL
     Indication: PULMONARY ARTERIAL HYPERTENSION
     Dosage: 2 DF, QD (ONCE DAILY)
     Route: 048
     Dates: start: 20200228
  17. ATIVAN [Concomitant]
     Active Substance: LORAZEPAM
     Indication: NAUSEA
  18. MAG-OX [Concomitant]
     Active Substance: MAGNESIUM OXIDE
     Indication: HYPOMAGNESAEMIA
     Dosage: 1 DF, DAILY
     Route: 048
     Dates: start: 20191020
  19. POTASSIUM CHLORIDE. [Concomitant]
     Active Substance: POTASSIUM CHLORIDE
     Indication: PROPHYLAXIS
     Dosage: 22.5 ML, DAILY; DILUTE 4 OUNCES OF COLD WATER
     Route: 048
     Dates: start: 20200401
  20. NEXPLANON [Concomitant]
     Active Substance: ETONOGESTREL
     Indication: PRODUCT USED FOR UNKNOWN INDICATION
     Dosage: 68 MG, CONTINUING
     Route: 059
     Dates: start: 20190715
  21. BUMEX [Concomitant]
     Active Substance: BUMETANIDE
     Indication: OEDEMA
     Dosage: 1 DF, BID
     Route: 048
     Dates: start: 20190529
  22. EMLA [Concomitant]
     Active Substance: LIDOCAINE\PRILOCAINE
     Indication: LOCAL ANAESTHESIA
     Dosage: APPLY 1 EACH TOPICALLY (PRIOR TO PORT ACCESS FOR CHEMOTHERAPY)
     Route: 061
     Dates: start: 20200331
  23. ALDACTONE [Concomitant]
     Active Substance: SPIRONOLACTONE
     Indication: OEDEMA
     Dosage: 1 DF, BID
     Route: 048
     Dates: start: 20200414
  24. OXYGEN. [Concomitant]
     Active Substance: OXYGEN
     Indication: PULMONARY HYPERTENSION
     Dosage: 2 L/MIN AT REST AND 6 L/MIN WITH EXERTION (USE VIA NASAL CANNULA)
     Route: 045
     Dates: start: 20200225

REACTIONS (3)
  - Respiratory arrest [Fatal]
  - Lung neoplasm malignant [Fatal]
  - Hypoxia [Fatal]

NARRATIVE: CASE EVENT DATE: 20200418
